FAERS Safety Report 22016144 (Version 1)
Quarter: 2023Q1

REPORT INFORMATION
  Report Type: Spontaneous
  Country: US (occurrence: US)
  Receive Date: 20230221
  Receipt Date: 20230221
  Transmission Date: 20230417
  Serious: No
  Sender: FDA-Public Use
  Company Number: US-ELI_LILLY_AND_COMPANY-US202302009907

PATIENT
  Sex: Female

DRUGS (9)
  1. MOUNJARO [Suspect]
     Active Substance: TIRZEPATIDE
     Indication: Glucose tolerance impaired
     Dosage: 2.5 MG, UNKNOWN
     Route: 065
     Dates: start: 202210
  2. MOUNJARO [Suspect]
     Active Substance: TIRZEPATIDE
     Indication: Menopause
  3. MOUNJARO [Suspect]
     Active Substance: TIRZEPATIDE
     Indication: Binge eating
  4. MOUNJARO [Suspect]
     Active Substance: TIRZEPATIDE
     Indication: Weight increased
  5. MOUNJARO [Suspect]
     Active Substance: TIRZEPATIDE
     Indication: Glucose tolerance impaired
     Dosage: 5 MG, UNKNOWN
     Route: 058
     Dates: start: 20230208
  6. MOUNJARO [Suspect]
     Active Substance: TIRZEPATIDE
     Indication: Menopause
  7. MOUNJARO [Suspect]
     Active Substance: TIRZEPATIDE
     Indication: Binge eating
  8. MOUNJARO [Suspect]
     Active Substance: TIRZEPATIDE
     Indication: Weight increased
  9. CHOLESTEROL [Concomitant]
     Active Substance: CHOLESTEROL
     Indication: Glucose tolerance impaired

REACTIONS (3)
  - Off label use [Unknown]
  - Decreased appetite [Unknown]
  - Nausea [Unknown]
